FAERS Safety Report 6505147-1 (Version None)
Quarter: 2009Q4

REPORT INFORMATION
  Report Type: 
  Country: None (occurrence: None)
  Receive Date: 20091218
  Receipt Date: 20091209
  Transmission Date: 20100525
  Serious: No
  Sender: FDA-Public Use
  Company Number: PHHY2009JP14964

PATIENT

DRUGS (3)
  1. AMN107 AMN+CAP [Suspect]
     Indication: CHRONIC MYELOID LEUKAEMIA
     Dosage: 800 MG DAILY
     Route: 048
     Dates: start: 20090326
  2. LOXONIN [Concomitant]
     Dosage: 3 DF, UNK
     Route: 048
     Dates: start: 20080612
  3. MYONAL [Concomitant]
     Dosage: 150 MG, UNK
     Route: 048
     Dates: start: 20080910

REACTIONS (2)
  - ELECTROCARDIOGRAM ST-T SEGMENT ABNORMAL [None]
  - HYPOAESTHESIA [None]
